FAERS Safety Report 19306311 (Version 1)
Quarter: 2021Q2

REPORT INFORMATION
  Report Type: Spontaneous
  Country: US (occurrence: US)
  Receive Date: 20210525
  Receipt Date: 20210525
  Transmission Date: 20210717
  Serious: Yes (Death)
  Sender: FDA-Public Use
  Company Number: None

PATIENT
  Age: 73 Year
  Sex: Female
  Weight: 155.4 kg

DRUGS (9)
  1. SPIRONOLACT 50 MG 50 MG TAB [Concomitant]
  2. METFORMIN 100 MG TAB [Concomitant]
  3. GLIPIZIDE ER 5 MG TAB [Concomitant]
  4. LEVOTHYROXIN 112 MCG TAB [Concomitant]
  5. ATORVASTATIN 80 MG [Concomitant]
     Active Substance: ATORVASTATIN
  6. HYDRALAZINE 20 MG  25 MG TAB [Concomitant]
  7. HYDRALAZINE 25 MG TAB [Concomitant]
  8. TADALAFIL. [Suspect]
     Active Substance: TADALAFIL
     Indication: ESSENTIAL HYPERTENSION
     Route: 048
  9. 60 MG CAP [Concomitant]

REACTIONS (1)
  - Death [None]

NARRATIVE: CASE EVENT DATE: 20210517
